FAERS Safety Report 4980309-3 (Version None)
Quarter: 2006Q2

REPORT INFORMATION
  Report Type: 
  Country: None (occurrence: None)
  Receive Date: 20060421
  Receipt Date: 20060421
  Transmission Date: 20061013
  Serious: Yes (Life-Threatening, Hospitalization, Disabling)
  Sender: FDA-Public Use
  Company Number: None

PATIENT
  Age: 71 Year
  Sex: Female
  Weight: 72.5755 kg

DRUGS (9)
  1. BYETTA [Suspect]
     Indication: DIABETES MELLITUS NON-INSULIN-DEPENDENT
     Dosage: 10 MCG 2 TIMES IM
     Route: 030
     Dates: start: 20050715, end: 20060420
  2. TRICOR [Concomitant]
  3. COZAAR [Concomitant]
  4. GLIPIZIDE ER [Concomitant]
  5. ASPIRIN [Concomitant]
  6. NIAPSPAN [Concomitant]
  7. METFORMIN [Concomitant]
  8. TOPORAL [Concomitant]
  9. LIPITOR [Concomitant]

REACTIONS (7)
  - BLOOD GLUCOSE DECREASED [None]
  - BLOOD GLUCOSE INCREASED [None]
  - DEVICE MALFUNCTION [None]
  - DISORIENTATION [None]
  - FEELING ABNORMAL [None]
  - HYPOGLYCAEMIA UNAWARENESS [None]
  - PHARMACEUTICAL PRODUCT COMPLAINT [None]
